FAERS Safety Report 21565873 (Version 1)
Quarter: 2022Q4

REPORT INFORMATION
  Report Type: Spontaneous
  Country: US (occurrence: US)
  Receive Date: 20221108
  Receipt Date: 20221108
  Transmission Date: 20230113
  Serious: Yes (Other)
  Sender: FDA-Public Use
  Company Number: US-PROCTER_AND_GAMBLE-GS22106042

PATIENT
  Sex: Female

DRUGS (5)
  1. CREST CAVITY PROTECTION REGULAR [Suspect]
     Active Substance: SODIUM FLUORIDE
     Dosage: 1 STRIP AT A TIME, REGULAR, TWICE A DAY
     Route: 002
  2. CREST CAVITY PROTECTION REGULAR [Suspect]
     Active Substance: SODIUM FLUORIDE
     Dosage: 1 STRIP AT A TIME, REGULAR, TWICE A DAY
     Route: 002
     Dates: end: 20221025
  3. CREST [Suspect]
     Active Substance: SODIUM FLUORIDE
     Dosage: UNK
     Route: 002
  4. CREST [Suspect]
     Active Substance: SODIUM FLUORIDE
     Dosage: UNK
     Route: 002
  5. CREST [Suspect]
     Active Substance: SODIUM FLUORIDE
     Dosage: UNK
     Route: 002

REACTIONS (6)
  - Squamous cell carcinoma [Unknown]
  - Glossodynia [Unknown]
  - Hyperchlorhydria [Not Recovered/Not Resolved]
  - Oral pain [Not Recovered/Not Resolved]
  - Glossitis [Recovering/Resolving]
  - Tongue disorder [Unknown]

NARRATIVE: CASE EVENT DATE: 20170101
